FAERS Safety Report 18660862 (Version 1)
Quarter: 2020Q4

REPORT INFORMATION
  Report Type: Report from Study
  Country: PL (occurrence: PL)
  Receive Date: 20201224
  Receipt Date: 20201224
  Transmission Date: 20210114
  Serious: Yes (Death)
  Sender: FDA-Public Use
  Company Number: NVSC2020PL340316

PATIENT
  Sex: Male

DRUGS (1)
  1. DEFERASIROX. [Suspect]
     Active Substance: DEFERASIROX
     Indication: ANAEMIA OF CHRONIC DISEASE
     Dosage: UNK
     Route: 065

REACTIONS (1)
  - Haemorrhagic stroke [Fatal]
